FAERS Safety Report 12673978 (Version 4)
Quarter: 2017Q3

REPORT INFORMATION
  Report Type: Report from Study
  Country: US (occurrence: US)
  Receive Date: 20160822
  Receipt Date: 20170825
  Transmission Date: 20171127
  Serious: No
  Sender: FDA-Public Use
  Company Number: PHHY2016US113135

PATIENT
  Age: 49 Year
  Sex: Female

DRUGS (1)
  1. GILENYA [Suspect]
     Active Substance: FINGOLIMOD HYDROCHLORIDE
     Indication: MULTIPLE SCLEROSIS
     Dosage: UNK, QD
     Route: 048

REACTIONS (5)
  - Plantar fasciitis [Unknown]
  - White blood cell count decreased [Recovering/Resolving]
  - Urinary tract infection [Recovered/Resolved]
  - Lymphocyte count decreased [Unknown]
  - Colon adenoma [Recovered/Resolved]

NARRATIVE: CASE EVENT DATE: 20151217
